FAERS Safety Report 10811758 (Version 23)
Quarter: 2018Q2

REPORT INFORMATION
  Report Type: Report from Study
  Country: CA (occurrence: CA)
  Receive Date: 20150217
  Receipt Date: 20180416
  Transmission Date: 20180711
  Serious: Yes (Other)
  Sender: FDA-Public Use
  Company Number: CA-ROCHE-1000508

PATIENT
  Age: 31 Year
  Sex: Female
  Weight: 55 kg

DRUGS (11)
  1. ACTEMRA [Suspect]
     Active Substance: TOCILIZUMAB
     Route: 042
     Dates: start: 20140704
  2. ACTEMRA [Suspect]
     Active Substance: TOCILIZUMAB
     Route: 042
     Dates: start: 20140801
  3. ADVIL [Concomitant]
     Active Substance: IBUPROFEN
  4. TYLENOL [Concomitant]
     Active Substance: ACETAMINOPHEN
  5. VITAMIN C [Concomitant]
     Active Substance: ASCORBIC ACID
  6. OMEGA 3 [Concomitant]
     Active Substance: OMEGA-3 FATTY ACIDS
  7. ACTEMRA [Suspect]
     Active Substance: TOCILIZUMAB
     Indication: STILL^S DISEASE
     Route: 042
     Dates: start: 20110721
  8. ACTEMRA [Suspect]
     Active Substance: TOCILIZUMAB
     Route: 042
     Dates: start: 20150825
  9. ACTEMRA [Suspect]
     Active Substance: TOCILIZUMAB
     Route: 042
     Dates: start: 20160608
  10. ACTEMRA [Suspect]
     Active Substance: TOCILIZUMAB
     Route: 042
     Dates: start: 20160609
  11. PREDNISONE. [Concomitant]
     Active Substance: PREDNISONE

REACTIONS (40)
  - Menstruation irregular [Not Recovered/Not Resolved]
  - Cough [Unknown]
  - Pneumonia [Unknown]
  - Thirst [Unknown]
  - Hypotension [Unknown]
  - Off label use [Unknown]
  - Heart rate decreased [Unknown]
  - Blood pressure increased [Unknown]
  - Paraesthesia [Not Recovered/Not Resolved]
  - Weight increased [Unknown]
  - Pain in extremity [Not Recovered/Not Resolved]
  - Rash pruritic [Not Recovered/Not Resolved]
  - Lip dry [Unknown]
  - Dyspnoea [Unknown]
  - Thirst [Not Recovered/Not Resolved]
  - Lip dry [Not Recovered/Not Resolved]
  - Hypotension [Unknown]
  - Hypotension [Unknown]
  - Joint stiffness [Not Recovered/Not Resolved]
  - Hypotension [Unknown]
  - Abdominal pain [Recovered/Resolved]
  - Neck pain [Not Recovered/Not Resolved]
  - Pain [Unknown]
  - Vaginal infection [Recovered/Resolved]
  - Cough [Recovering/Resolving]
  - Influenza [Unknown]
  - Incorrect drug administration duration [Unknown]
  - Restless legs syndrome [Not Recovered/Not Resolved]
  - Joint swelling [Unknown]
  - Restless legs syndrome [Unknown]
  - Pneumonia [Unknown]
  - Arthralgia [Not Recovered/Not Resolved]
  - Infusion related reaction [Unknown]
  - Nasopharyngitis [Recovering/Resolving]
  - Joint swelling [Not Recovered/Not Resolved]
  - Inflammation [Not Recovered/Not Resolved]
  - Weight increased [Unknown]
  - Blood pressure diastolic decreased [Unknown]
  - Incorrect dose administered [Unknown]
  - Paraesthesia [Unknown]

NARRATIVE: CASE EVENT DATE: 20110913
